FAERS Safety Report 6693030-0 (Version None)
Quarter: 2010Q2

REPORT INFORMATION
  Report Type: 
  Country: None (occurrence: None)
  Receive Date: 20100419
  Receipt Date: 20100408
  Transmission Date: 20101027
  Serious: Yes (Death, Congenital Anomaly)
  Sender: FDA-Public Use
  Company Number: 1000012848

PATIENT
  Weight: 2.9 kg

DRUGS (2)
  1. CARBAMAZEPINE [Suspect]
     Dosage: 100 MG (100 MG, 1 IN 1 D), TRANSPLACENTAL
     Route: 062
  2. FOLATE [Concomitant]

REACTIONS (4)
  - CARDIAC FAILURE [None]
  - DIGEORGE'S SYNDROME [None]
  - FALLOT'S TETRALOGY [None]
  - MATERNAL DRUGS AFFECTING FOETUS [None]
